FAERS Safety Report 12357157 (Version 14)
Quarter: 2019Q3

REPORT INFORMATION
  Report Type: Report from Study
  Country: SK (occurrence: SK)
  Receive Date: 20160511
  Receipt Date: 20190926
  Transmission Date: 20191004
  Serious: Yes (Death, Hospitalization, Other)
  Sender: FDA-Public Use
  Company Number: PHHY2015SK027382

PATIENT
  Age: 26 Year
  Sex: Female
  Weight: 68 kg

DRUGS (3)
  1. FRAXIPARIN [Concomitant]
     Active Substance: NADROPARIN CALCIUM
     Indication: PROPHYLAXIS
     Dosage: UNK
     Route: 065
     Dates: start: 20150810, end: 20150814
  2. GILENYA [Suspect]
     Active Substance: FINGOLIMOD HYDROCHLORIDE
     Indication: MULTIPLE SCLEROSIS
     Dosage: 0.5 MG, QD
     Route: 048
     Dates: start: 20131227, end: 201501
  3. TRAMAL [Concomitant]
     Active Substance: TRAMADOL
     Indication: HEADACHE
     Dosage: UNK
     Route: 065
     Dates: start: 20150810

REACTIONS (17)
  - Central nervous system lesion [Fatal]
  - Headache [Fatal]
  - Disorientation [Fatal]
  - Cardiopulmonary failure [Fatal]
  - Lymphocyte count decreased [Unknown]
  - Intracranial pressure increased [Fatal]
  - Status epilepticus [Fatal]
  - Brain oedema [Fatal]
  - Encephalomyelitis [Recovered/Resolved]
  - Anaplastic astrocytoma [Fatal]
  - Seizure [Fatal]
  - Tumefactive multiple sclerosis [Recovered/Resolved]
  - Depression [Not Recovered/Not Resolved]
  - Epilepsy [Fatal]
  - Epilepsy [Fatal]
  - Quadriparesis [Fatal]
  - Respiratory tract infection [Recovered/Resolved]

NARRATIVE: CASE EVENT DATE: 20140207
